FAERS Safety Report 4743537-8 (Version None)
Quarter: 2005Q3

REPORT INFORMATION
  Report Type: 
  Country: None (occurrence: None)
  Receive Date: 20050812
  Receipt Date: 20050802
  Transmission Date: 20060218
  Serious: Yes (Hospitalization)
  Sender: FDA-Public Use
  Company Number: US-JNJFOC-20050800972

PATIENT
  Sex: Male
  Weight: 51.71 kg

DRUGS (20)
  1. REMICADE [Suspect]
     Route: 042
  2. REMICADE [Suspect]
     Route: 042
  3. REMICADE [Suspect]
     Indication: RHEUMATOID ARTHRITIS
     Route: 042
  4. IMURAN [Suspect]
     Indication: RHEUMATOID ARTHRITIS
  5. METHOTREXATE [Suspect]
     Indication: RHEUMATOID ARTHRITIS
  6. TENORMIN [Concomitant]
     Dates: start: 20040701
  7. PLAVIX [Concomitant]
     Dates: start: 20040701
  8. ASPIRIN [Concomitant]
     Dates: start: 20040701
  9. LASIX [Concomitant]
     Dates: start: 20040701
  10. LIPITOR [Concomitant]
     Dates: start: 20040701
  11. ZANTAC [Concomitant]
     Dates: start: 20040701
  12. AMBIEN [Concomitant]
     Dates: start: 20040701
  13. FOSAMAX [Concomitant]
     Dates: start: 20040701
  14. CALCIUM D [Concomitant]
     Dates: start: 20040701
  15. CALCIUM D [Concomitant]
     Dates: start: 20040701
  16. CALCIUM D [Concomitant]
     Dates: start: 20040701
  17. OCUVITE [Concomitant]
     Dates: start: 20040701
  18. OCUVITE [Concomitant]
     Dates: start: 20040701
  19. OCUVITE [Concomitant]
     Dates: start: 20040701
  20. PREDNISONE [Concomitant]
     Dosage: TO BE TAPERED OFF

REACTIONS (2)
  - HAEMOGLOBIN DECREASED [None]
  - LUNG DISORDER [None]
